FAERS Safety Report 7793643-9 (Version None)
Quarter: 2011Q4

REPORT INFORMATION
  Report Type: 
  Country: None (occurrence: None)
  Receive Date: 20111003
  Receipt Date: 20110927
  Transmission Date: 20120403
  Serious: Yes (Death, Hospitalization, Other)
  Sender: FDA-Public Use
  Company Number: US-CELGENEUS-163-21880-09042036

PATIENT

DRUGS (2)
  1. REVLIMID [Suspect]
     Dosage: 25 MILLIGRAM
     Route: 048
  2. REVLIMID [Suspect]
     Dosage: 5 MILLIGRAM
     Route: 048

REACTIONS (11)
  - DEATH [None]
  - ASPARTATE AMINOTRANSFERASE INCREASED [None]
  - TRANSAMINASES INCREASED [None]
  - PARAINFLUENZAE VIRUS INFECTION [None]
  - TUMOUR FLARE [None]
  - PANCYTOPENIA [None]
  - EXFOLIATIVE RASH [None]
  - FATIGUE [None]
  - DISEASE PROGRESSION [None]
  - BLOOD BILIRUBIN INCREASED [None]
  - RASH [None]
